FAERS Safety Report 5064106-9 (Version None)
Quarter: 2006Q3

REPORT INFORMATION
  Report Type: 
  Country: None (occurrence: None)
  Receive Date: 20060706
  Receipt Date: 20060508
  Transmission Date: 20061208
  Serious: No
  Sender: FDA-Public Use
  Company Number: 200612941BWH

PATIENT
  Age: 58 Year
  Sex: Male

DRUGS (2)
  1. LEVITRA [Suspect]
     Indication: ERECTILE DYSFUNCTION
     Dosage: 10 MG BIW ORAL
     Route: 048
     Dates: start: 20060401
  2. ACCUPRIL [Concomitant]

REACTIONS (1)
  - RESPIRATORY TRACT CONGESTION [None]
